FAERS Safety Report 21001069 (Version 1)
Quarter: 2022Q2

REPORT INFORMATION
  Report Type: Spontaneous
  Country: US (occurrence: US)
  Receive Date: 20220624
  Receipt Date: 20220624
  Transmission Date: 20220721
  Serious: No
  Sender: FDA-Public Use
  Company Number: US-BioHaven Pharmaceuticals-2022BHV000670

PATIENT
  Sex: Female

DRUGS (1)
  1. NURTEC ODT [Suspect]
     Active Substance: RIMEGEPANT SULFATE
     Indication: Migraine prophylaxis
     Dosage: FIRST SHIPMENT OF NURTEC ODT WAS ON 17-NOV-2021 VIA WHITE DRUG PHARMACY.
     Route: 065
     Dates: end: 2022

REACTIONS (1)
  - Drug ineffective [Unknown]
